FAERS Safety Report 10050222 (Version 1)
Quarter: 2014Q2

REPORT INFORMATION
  Report Type: Spontaneous
  Country: GB (occurrence: GB)
  Receive Date: 20140401
  Receipt Date: 20140401
  Transmission Date: 20141212
  Serious: Yes (Congenital Anomaly)
  Sender: FDA-Public Use
  Company Number: GB-ASTRAZENECA-2014SE20293

PATIENT
  Sex: Female
  Weight: 3.8 kg

DRUGS (7)
  1. SYMBICORT [Suspect]
     Indication: ASTHMA
     Route: 064
  2. ALENDRONIC ACID [Suspect]
     Dosage: WEEKLY
     Route: 064
  3. MONTELUKAST SODIUM [Suspect]
     Route: 064
  4. FEXOFENADINE [Suspect]
     Indication: ASTHMA
     Route: 064
  5. SPIRIVA [Suspect]
     Indication: ASTHMA
     Dosage: BID
     Route: 064
  6. THEOPHYLLINE [Suspect]
     Indication: ASTHMA
     Route: 064
  7. XOLAIR [Suspect]
     Indication: ASTHMA
     Route: 064

REACTIONS (1)
  - Hearing impaired [Unknown]
